FAERS Safety Report 18147591 (Version 1)
Quarter: 2020Q3

REPORT INFORMATION
  Report Type: Spontaneous
  Country: CA (occurrence: CA)
  Receive Date: 20200813
  Receipt Date: 20200813
  Transmission Date: 20201103
  Serious: Yes (Death, Other)
  Sender: FDA-Public Use
  Company Number: CA-TEVA-2020-CA-1813372

PATIENT
  Age: 17 Year
  Sex: Female
  Weight: 63 kg

DRUGS (4)
  1. TYLENOL WITH CODEINE [Suspect]
     Active Substance: ACETAMINOPHEN\CODEINE PHOSPHATE
     Indication: PAIN MANAGEMENT
     Route: 048
  2. ACETAMINOPHEN AND CODEINE [Suspect]
     Active Substance: ACETAMINOPHEN\CODEINE PHOSPHATE
     Indication: PAIN MANAGEMENT
     Route: 048
  3. KETOROLAC TROMETHAMINE. [Suspect]
     Active Substance: KETOROLAC TROMETHAMINE
     Indication: PAIN MANAGEMENT
     Route: 048
  4. DEXAMETHASONE. [Suspect]
     Active Substance: DEXAMETHASONE
     Indication: PRODUCT USED FOR UNKNOWN INDICATION
     Route: 048

REACTIONS (2)
  - Completed suicide [Fatal]
  - Thinking abnormal [Fatal]
